FAERS Safety Report 10127400 (Version 2)
Quarter: 2015Q1

REPORT INFORMATION
  Report Type: Other
  Country: GB (occurrence: GB)
  Receive Date: 20140428
  Receipt Date: 20150226
  Transmission Date: 20150720
  Serious: Yes (Disabling)
  Sender: FDA-Public Use
  Company Number: GB-MYLANLABS-2014S1008927

PATIENT

DRUGS (14)
  1. DOXYCYCLINE. [Suspect]
     Active Substance: DOXYCYCLINE
     Indication: SINUSITIS
     Dosage: 200MG TO START AND THEN 100MG DAILY
     Route: 048
     Dates: start: 20140228, end: 20140307
  2. ATENOLOL. [Concomitant]
     Active Substance: ATENOLOL
     Dosage: 50 MG,QD
  3. DUROGESIC [Concomitant]
     Active Substance: FENTANYL
     Indication: BACK PAIN
     Dosage: 2 PATCHES EVERY 72 HOURS FOR CHRONIC BACK PAIN
  4. IBUPROFEN. [Concomitant]
     Active Substance: IBUPROFEN
     Dosage: 400 MG, THREE TIMES DAILY AS REQUIRED,
  5. OMEPRAZOLE. [Concomitant]
     Active Substance: OMEPRAZOLE
     Dosage: 20 UNK,UNK
  6. DOXEPIN [Concomitant]
     Active Substance: DOXEPIN
     Indication: PRURITUS
     Dosage: 5 % CREAM THREE TIMES DAILY PRN
  7. DILTIAZEM [Concomitant]
     Active Substance: DILTIAZEM
     Dosage: 120MG MODIFIED RELEASE ONCE DAILY
  8. SIMVASTATIN. [Concomitant]
     Active Substance: SIMVASTATIN
     Indication: HYPERCHOLESTEROLAEMIA
     Dosage: 40 MG, UNK
  9. LOSARTAN [Concomitant]
     Active Substance: LOSARTAN
     Indication: HYPERTENSION
     Dosage: ONE DAILY
  10. CLONIDINE. [Concomitant]
     Active Substance: CLONIDINE
     Indication: FLUSHING
     Dosage: 50MG THREE TIMES DAILY FOR MENOPAUSAL FLUSHING
  11. LOPERAMIDE [Concomitant]
     Active Substance: LOPERAMIDE
     Dosage: UNK
  12. PARACETAMOL [Concomitant]
     Active Substance: ACETAMINOPHEN
     Dosage: 1 G,QID(FOUR TIMES DAILY AS REQUIRED)
  13. PROCHLORPERAZINE. [Concomitant]
     Active Substance: PROCHLORPERAZINE
     Dosage: 3 MG, UNK
  14. FEXOFENADINE [Concomitant]
     Active Substance: FEXOFENADINE\FEXOFENADINE HYDROCHLORIDE
     Dosage: 120 UNK,UNK

REACTIONS (2)
  - Tongue discolouration [Recovering/Resolving]
  - Tongue oedema [Unknown]

NARRATIVE: CASE EVENT DATE: 20140303
